FAERS Safety Report 9847193 (Version 2)
Quarter: 2014Q1

REPORT INFORMATION
  Report Type: Spontaneous
  Country: US (occurrence: US)
  Receive Date: 20140127
  Receipt Date: 20140212
  Transmission Date: 20141002
  Serious: Yes (Other)
  Sender: FDA-Public Use
  Company Number: US-PFIZER INC-2014024416

PATIENT
  Age: 28 Year
  Sex: Female
  Weight: 63.49 kg

DRUGS (4)
  1. EFFEXOR XR [Suspect]
     Indication: ANXIETY
     Dosage: 150 MG, DAILY
     Dates: start: 2006, end: 201111
  2. EFFEXOR XR [Suspect]
     Indication: DEPRESSION
     Dosage: 150 MG, DAILY
  3. IBUPROFEN [Concomitant]
     Indication: BACK PAIN
     Dosage: 200 MG, AS NEEDED
  4. IBUPROFEN [Concomitant]
     Indication: HEADACHE

REACTIONS (1)
  - Deafness bilateral [Not Recovered/Not Resolved]
